FAERS Safety Report 20469812 (Version 1)
Quarter: 2022Q1

REPORT INFORMATION
  Report Type: Other
  Country: DE (occurrence: DE)
  Receive Date: 20220214
  Receipt Date: 20220214
  Transmission Date: 20220424
  Serious: Yes (Congenital Anomaly, Other)
  Sender: FDA-Public Use
  Company Number: DE-EMBRYOTOX-202100562

PATIENT
  Age: 1 Day
  Sex: Male
  Weight: 2.97 kg

DRUGS (4)
  1. QUETIAPINE [Suspect]
     Active Substance: QUETIAPINE
     Indication: Sleep disorder
     Dosage: 25 MILLIGRAM, BID
     Route: 064
     Dates: start: 20200905, end: 20210609
  2. ZELDOX [Suspect]
     Active Substance: ZIPRASIDONE
     Indication: Bipolar I disorder
     Dosage: 60 MILLIGRAM, QD (60 (MG/D (20-0-40))
     Route: 064
     Dates: start: 20200905, end: 20210609
  3. BOOSTRIX POLIO [Concomitant]
     Active Substance: DIPHTHERIA AND TETANUS TOXOIDS AND ACELLULAR PERTUSSIS ADSORBED AND INACTIVATED POLIOVIRUS VACCINE
     Indication: Immunisation
     Dosage: UNK (34.5-34.5. GESTATIONAL WEEK )
     Route: 064
     Dates: start: 20210506, end: 20210506
  4. FLUTICASONE PROPIONATE\SALMETEROL XINAFOATE [Concomitant]
     Active Substance: FLUTICASONE PROPIONATE\SALMETEROL XINAFOATE
     Indication: Asthma
     Dosage: UNK
     Route: 064
     Dates: start: 20200905, end: 20210609

REACTIONS (6)
  - Opisthotonus [Unknown]
  - Dacryostenosis congenital [Unknown]
  - Hypotonia neonatal [Unknown]
  - Hypoglycaemia neonatal [Recovered/Resolved]
  - Foetal exposure during pregnancy [Unknown]
  - Hypospadias [Unknown]

NARRATIVE: CASE EVENT DATE: 20210601
